FAERS Safety Report 9589783 (Version 1)
Quarter: 2013Q4

REPORT INFORMATION
  Report Type: Spontaneous
  Country: US (occurrence: US)
  Receive Date: 20131003
  Receipt Date: 20131003
  Transmission Date: 20140711
  Serious: No
  Sender: FDA-Public Use
  Company Number: US-AMGEN-USASP2012072902

PATIENT
  Age: 70 Year
  Sex: Female

DRUGS (4)
  1. ENBREL [Suspect]
     Indication: RHEUMATOID ARTHRITIS
     Dosage: 50 MG, QWK
     Route: 058
     Dates: start: 20110331
  2. WELLBUTRIN [Concomitant]
     Dosage: UNK
  3. ZYPREXA [Concomitant]
     Dosage: UNK
  4. XANAX [Concomitant]
     Dosage: UNK

REACTIONS (1)
  - Haemorrhage [Unknown]
